FAERS Safety Report 4595969-9 (Version None)
Quarter: 2005Q1

REPORT INFORMATION
  Report Type: 
  Country: None (occurrence: None)
  Receive Date: 20050225
  Receipt Date: 20050214
  Transmission Date: 20050727
  Serious: Yes (Other)
  Sender: FDA-Public Use
  Company Number: HQWYE371716FEB05

PATIENT
  Sex: Female

DRUGS (1)
  1. RAPAMUNE [Suspect]
     Indication: PANCREAS ISLET CELL TRANSPLANT

REACTIONS (2)
  - DISEASE RECURRENCE [None]
  - OVARIAN CYST [None]
